FAERS Safety Report 8215142-2 (Version None)
Quarter: 2012Q1

REPORT INFORMATION
  Report Type: 
  Country: None (occurrence: None)
  Receive Date: 20120316
  Receipt Date: 20120306
  Transmission Date: 20120608
  Serious: Yes (Hospitalization)
  Sender: FDA-Public Use
  Company Number: DE-ELI_LILLY_AND_COMPANY-DE201203001767

PATIENT
  Age: 41 Year
  Sex: Male

DRUGS (8)
  1. CORTISONE ACETATE [Concomitant]
     Dosage: 5 MG, UNK
     Dates: start: 20070101
  2. LYRICA [Concomitant]
  3. ANTIHYPERTENSIVES [Concomitant]
     Indication: HYPERTENSION
  4. LEVOTHYROXINE SODIUM [Concomitant]
  5. ERGOCALCIFEROL [Concomitant]
  6. FORTEO [Suspect]
     Indication: OSTEOPOROSIS
     Dosage: UNK, QD
     Route: 058
     Dates: start: 20111116
  7. CALCIUM [Concomitant]
  8. VITAMIN D [Concomitant]

REACTIONS (2)
  - HOSPITALISATION [None]
  - FOOT FRACTURE [None]
